FAERS Safety Report 7557838-1 (Version None)
Quarter: 2011Q2

REPORT INFORMATION
  Report Type: 
  Country: None (occurrence: None)
  Receive Date: 20110613
  Receipt Date: 20110601
  Transmission Date: 20111010
  Serious: Yes (Other)
  Sender: FDA-Public Use
  Company Number: 2011SP025475

PATIENT
  Age: 63 Year
  Sex: Female

DRUGS (5)
  1. TEMODAL [Suspect]
     Indication: GLIOBLASTOMA MULTIFORME
     Dosage: 115 MG; 230 MG
     Dates: start: 20110516
  2. BACTRIM [Concomitant]
  3. IRBESARTAN + HYDROCHLOROTHIAZIDE [Concomitant]
  4. NORVASC [Concomitant]
  5. ZOFRAN [Concomitant]

REACTIONS (3)
  - DEEP VEIN THROMBOSIS [None]
  - NAUSEA [None]
  - FATIGUE [None]
